FAERS Safety Report 5843676-4 (Version None)
Quarter: 2008Q3

REPORT INFORMATION
  Report Type: 
  Country: None (occurrence: None)
  Receive Date: 20080811
  Receipt Date: 20080728
  Transmission Date: 20090109
  Serious: Yes (Hospitalization)
  Sender: FDA-Public Use
  Company Number: FABR-1000329

PATIENT
  Age: 40 Year
  Sex: Male
  Weight: 89 kg

DRUGS (3)
  1. FABRAZYME [Suspect]
     Indication: FABRY'S DISEASE
     Dosage: 1.0 MG, BIWEEKLY, INTRAVENOUS
     Route: 042
     Dates: start: 20080530
  2. PERINDOPRIL ERBUMINE [Concomitant]
  3. CARBAMAZEPINE [Concomitant]

REACTIONS (2)
  - ERYTHEMA [None]
  - SWOLLEN TONGUE [None]
